FAERS Safety Report 16098280 (Version 1)
Quarter: 2019Q1

REPORT INFORMATION
  Report Type: Other
  Country: GB (occurrence: GB)
  Receive Date: 20190321
  Receipt Date: 20190321
  Transmission Date: 20190418
  Serious: Yes (Hospitalization, Other)
  Sender: FDA-Public Use
  Company Number: GB-DENTSPLY-2019SCDP000151

PATIENT
  Age: 51 Year
  Sex: Female

DRUGS (2)
  1. MEPIVACAINE HCL [Suspect]
     Active Substance: MEPIVACAINE\MEPIVACAINE HYDROCHLORIDE
     Indication: LOCAL ANAESTHESIA
     Dosage: 2.2 ML, TOTAL, 231
     Route: 004
     Dates: start: 20180312
  2. CLINDAMYCIN HYDROCHLORIDE W/TRIAMCINOLONE ACE [Suspect]
     Active Substance: CLINDAMYCIN HYDROCHLORIDE\TRIAMCINOLONE ACETONIDE
     Indication: PULPITIS DENTAL
     Dosage: DRESSING
     Route: 004
     Dates: start: 20180312

REACTIONS (1)
  - Anaphylactic reaction [Unknown]

NARRATIVE: CASE EVENT DATE: 20180314
